FAERS Safety Report 8355397-7 (Version None)
Quarter: 2012Q2

REPORT INFORMATION
  Report Type: 
  Country: None (occurrence: None)
  Receive Date: 20120511
  Receipt Date: 20120509
  Transmission Date: 20120825
  Serious: Yes (Other)
  Sender: FDA-Public Use
  Company Number: US-ALLERGAN-1205637US

PATIENT
  Age: 89 Year
  Sex: Female
  Weight: 65.76 kg

DRUGS (3)
  1. COMBIGAN [Suspect]
     Indication: GLAUCOMA
     Dosage: UNK
     Route: 047
     Dates: start: 20120227, end: 20120417
  2. PLAVIX [Concomitant]
  3. LEVOTHYROXINE SODIUM [Concomitant]

REACTIONS (5)
  - SWOLLEN TONGUE [None]
  - LETHARGY [None]
  - ASTHENIA [None]
  - CONFUSIONAL STATE [None]
  - INCORRECT DOSE ADMINISTERED [None]
